FAERS Safety Report 8991311 (Version 2)
Quarter: 2013Q1

REPORT INFORMATION
  Report Type: Spontaneous
  Country: US (occurrence: US)
  Receive Date: 20121230
  Receipt Date: 20130213
  Transmission Date: 20140127
  Serious: Yes (Other)
  Sender: FDA-Public Use
  Company Number: US-UCBSA-072361

PATIENT
  Age: 46 Year
  Sex: Male
  Weight: 108.9 kg

DRUGS (7)
  1. CIMZIA [Suspect]
     Indication: CROHN^S DISEASE
     Route: 058
     Dates: start: 2009
  2. ADVAIR DISK [Concomitant]
     Indication: ASTHMA
     Dosage: 250MG DAILY, ROUTE:INHALER
  3. ALLEGRA-D [Concomitant]
     Dosage: UNKNOWN DOSE DAILY
     Route: 048
  4. FLONASE [Concomitant]
     Dosage: UNKNOWN DOSE DAILY
     Route: 045
  5. NEXIUM [Concomitant]
     Indication: GASTROOESOPHAGEAL REFLUX DISEASE
     Dosage: 40MG DAILY
     Route: 048
  6. LISINOPRIL [Concomitant]
     Indication: HYPERTENSION
     Route: 048
  7. METFORMIN [Concomitant]
     Route: 048

REACTIONS (1)
  - Retinal detachment [Recovering/Resolving]
